FAERS Safety Report 9599569 (Version 1)
Quarter: 2013Q4

REPORT INFORMATION
  Report Type: Spontaneous
  Country: US (occurrence: US)
  Receive Date: 20131004
  Receipt Date: 20131004
  Transmission Date: 20140711
  Serious: No
  Sender: FDA-Public Use
  Company Number: US-AMGEN-USASP2013030586

PATIENT
  Age: 50 Year
  Sex: Female
  Weight: 73.02 kg

DRUGS (7)
  1. ENBREL [Suspect]
     Indication: PRODUCT USED FOR UNKNOWN INDICATION
     Dosage: 50 MG, QWK
     Route: 058
  2. VITAMIN D                          /00107901/ [Concomitant]
     Dosage: 400 UNIT, UNK
  3. SYNTHROID [Concomitant]
     Dosage: 100 MUG, UNK
  4. ZYRTEC [Concomitant]
     Dosage: 10 MG, UNK
  5. ESTROVEN [Concomitant]
     Dosage: UNK
  6. CENTRUM                            /02217401/ [Concomitant]
     Dosage: UNK
  7. LISINOPRIL [Concomitant]
     Dosage: 20 MG, UNK

REACTIONS (1)
  - Oral pain [Unknown]
